FAERS Safety Report 11708862 (Version 1)
Quarter: 2015Q4

REPORT INFORMATION
  Report Type: Spontaneous
  Country: US (occurrence: US)
  Receive Date: 20151104
  Receipt Date: 20151104
  Transmission Date: 20160304
  Serious: No
  Sender: FDA-Public Use
  Company Number: US-ELI_LILLY_AND_COMPANY-US201103003535

PATIENT
  Age: 70 Year
  Sex: Female

DRUGS (1)
  1. FORTEO [Suspect]
     Active Substance: TERIPARATIDE
     Indication: OSTEOPOROSIS
     Dosage: 20 UG, DAILY (1/D)
     Dates: start: 20110302

REACTIONS (10)
  - Decreased appetite [Unknown]
  - Abdominal discomfort [Unknown]
  - Hiccups [Not Recovered/Not Resolved]
  - Nervousness [Unknown]
  - Injection site erythema [Unknown]
  - Eye pruritus [Unknown]
  - Anger [Unknown]
  - Depression [Unknown]
  - Nausea [Unknown]
  - Feeling abnormal [Unknown]

NARRATIVE: CASE EVENT DATE: 20110303
